FAERS Safety Report 20656482 (Version 1)
Quarter: 2022Q1

REPORT INFORMATION
  Report Type: Spontaneous
  Country: US (occurrence: US)
  Receive Date: 20220331
  Receipt Date: 20220331
  Transmission Date: 20220424
  Serious: No
  Sender: FDA-Public Use
  Company Number: US-DECIPHERA PHARMACEUTICALS LLC-2022US000244

PATIENT
  Sex: Female

DRUGS (1)
  1. QINLOCK [Suspect]
     Active Substance: RIPRETINIB
     Indication: Malignant melanoma
     Dosage: 100 MILLIGRAM, QD
     Route: 048

REACTIONS (2)
  - Underdose [Unknown]
  - Product use in unapproved indication [Unknown]
